APPROVED DRUG PRODUCT: HYFTOR
Active Ingredient: SIROLIMUS
Strength: 0.2%
Dosage Form/Route: GEL;TOPICAL
Application: N213478 | Product #001
Applicant: NOBELPHARMA CO LTD
Approved: Mar 22, 2022 | RLD: Yes | RS: Yes | Type: RX

EXCLUSIVITY:
Code: ODE-391 | Date: Mar 22, 2029